FAERS Safety Report 8401151-7 (Version None)
Quarter: 2012Q2

REPORT INFORMATION
  Report Type: 
  Country: None (occurrence: None)
  Receive Date: 20120525
  Receipt Date: 20120516
  Transmission Date: 20120825
  Serious: Yes (Hospitalization)
  Sender: FDA-Public Use
  Company Number: 1290581

PATIENT
  Sex: Female

DRUGS (10)
  1. MYCOPHENOLATE MOFETIL [Concomitant]
  2. METHYLPREDNISOLONE [Concomitant]
  3. CALCIUM CARBONATE [Concomitant]
  4. (ESTRADIOL W/NORETHISTERONE) [Concomitant]
  5. ALENDRONATE SODIUM [Suspect]
     Indication: PELVIC FRACTURE
     Dosage: 70 MG WEEKLY,
  6. (PREDNISONE) [Concomitant]
  7. PAMIDRONATE DISODIUM [Suspect]
     Indication: HYPERCALCAEMIA
     Dosage: 30-60 MG SIX WEEKLY, INTRAVENOUS DRIP
     Route: 041
  8. CYCLOSPORINE [Concomitant]
  9. TACROLIMUS [Concomitant]
  10. CALCITRIOL [Concomitant]

REACTIONS (6)
  - LOW TURNOVER OSTEOPATHY [None]
  - FEMUR FRACTURE [None]
  - FRACTURE DELAYED UNION [None]
  - FEMORAL NECK FRACTURE [None]
  - HYPERPARATHYROIDISM [None]
  - PELVIC FRACTURE [None]
